FAERS Safety Report 5329178-2 (Version None)
Quarter: 2007Q2

REPORT INFORMATION
  Report Type: 
  Country: None (occurrence: None)
  Receive Date: 20070518
  Receipt Date: 20070508
  Transmission Date: 20071010
  Serious: Yes (Hospitalization)
  Sender: FDA-Public Use
  Company Number: KR-PFIZER INC-2007028326

PATIENT
  Sex: Female
  Weight: 56.5 kg

DRUGS (7)
  1. SU-011,248 [Suspect]
     Indication: RENAL CELL CARCINOMA STAGE UNSPECIFIED
     Route: 048
     Dates: start: 20061116, end: 20070403
  2. SIGMART [Concomitant]
     Route: 048
  3. ZANIDIP [Concomitant]
     Route: 048
     Dates: start: 20070210, end: 20070327
  4. TORSEMIDE [Concomitant]
     Route: 048
     Dates: start: 20070210, end: 20070404
  5. MEGESTROL ACETATE [Concomitant]
     Route: 048
     Dates: start: 20070328
  6. DICETEL [Concomitant]
     Route: 048
     Dates: start: 20070328
  7. NIFEDIPINE [Concomitant]
     Route: 048
     Dates: start: 20070328

REACTIONS (2)
  - GASTROINTESTINAL HAEMORRHAGE [None]
  - RENAL FAILURE [None]
